FAERS Safety Report 4985011-X (Version None)
Quarter: 2006Q2

REPORT INFORMATION
  Report Type: 
  Country: None (occurrence: None)
  Receive Date: 20060426
  Receipt Date: 20060426
  Transmission Date: 20061013
  Serious: Yes (Death, Hospitalization)
  Sender: FDA-Public Use
  Company Number: None

PATIENT
  Age: 7 Year
  Sex: Female

DRUGS (2)
  1. PHENERGAN SUPPOSITORY [Suspect]
     Indication: STOMACH DISCOMFORT
     Dosage: ONE SUPPOSITORY  ONLY ONCE   RECTAL
     Route: 054
  2. PHENERGAN SUPPOSITORY [Suspect]
     Indication: VOMITING
     Dosage: ONE SUPPOSITORY  ONLY ONCE   RECTAL
     Route: 054

REACTIONS (8)
  - BLINDNESS [None]
  - COMA [None]
  - CONVULSION [None]
  - DRUG PRESCRIBING ERROR [None]
  - DRUG TOXICITY [None]
  - FALL [None]
  - GAIT DISTURBANCE [None]
  - RESPIRATORY ARREST [None]
